FAERS Safety Report 16656820 (Version 2)
Quarter: 2019Q3

REPORT INFORMATION
  Report Type: Spontaneous
  Country: EG (occurrence: EG)
  Receive Date: 20190801
  Receipt Date: 20190815
  Transmission Date: 20191004
  Serious: Yes (Other)
  Sender: FDA-Public Use
  Company Number: EG-NOVOPROD-676389

PATIENT
  Age: 56 Year
  Sex: Female
  Weight: 115 kg

DRUGS (5)
  1. CAPTOPRIL. [Concomitant]
     Active Substance: CAPTOPRIL
     Dosage: ONCE ORALLY BEFORE BREAKFAST
     Route: 048
     Dates: start: 2018
  2. ASPRIN [Concomitant]
     Active Substance: ASPIRIN
     Indication: HAEMOPHILIA
     Dosage: ONCE DAILY AFTER LUNCH (2 YEARS AGO)
     Route: 048
  3. EPILAT RETARD [Concomitant]
     Dosage: TWICE DAILY (ONCE ORALLY BEFORE BREAKFAST AND DINNER)
     Route: 048
     Dates: start: 2018
  4. MIXTARD 30 HM PENFILL [Suspect]
     Active Substance: INSULIN HUMAN
     Indication: DIABETES MELLITUS
     Dosage: 60 IU, QD (30IU AM -30IU PM)
     Route: 058
     Dates: start: 2013
  5. CIDOPHAGE [Concomitant]
     Indication: DIABETES MELLITUS
     Dosage: ONCE DAILY
     Route: 048

REACTIONS (1)
  - Inguinal hernia [Recovered/Resolved]
